FAERS Safety Report 26142572 (Version 1)
Quarter: 2025Q4

REPORT INFORMATION
  Report Type: Report from Study
  Country: US (occurrence: US)
  Receive Date: 20251210
  Receipt Date: 20251210
  Transmission Date: 20260118
  Serious: Yes (Other)
  Sender: ABBVIE
  Company Number: US-ABBVIE-6582917

PATIENT
  Age: 77 Year
  Sex: Female

DRUGS (1)
  1. RINVOQ [Suspect]
     Active Substance: UPADACITINIB
     Indication: Rheumatoid arthritis
     Dosage: UNKNOWN
     Route: 048
     Dates: start: 2024

REACTIONS (7)
  - Spinal operation [Unknown]
  - Gait disturbance [Unknown]
  - Epistaxis [Unknown]
  - Balance disorder [Recovering/Resolving]
  - Stress fracture [Unknown]
  - Fall [Unknown]
  - Nerve compression [Unknown]

NARRATIVE: CASE EVENT DATE: 20240301
